FAERS Safety Report 11153236 (Version 1)
Quarter: 2015Q2

REPORT INFORMATION
  Report Type: Spontaneous
  Country: PL (occurrence: PL)
  Receive Date: 20150601
  Receipt Date: 20150601
  Transmission Date: 20150821
  Serious: Yes (Other)
  Sender: FDA-Public Use
  Company Number: PL-TEVA-566048ISR

PATIENT
  Age: 70 Year
  Weight: 76 kg

DRUGS (3)
  1. OXALIPLATYNA [Suspect]
     Active Substance: OXALIPLATIN
     Indication: RECTAL CANCER
     Route: 042
     Dates: start: 20140225
  2. 5-FLUOROURACYL [Suspect]
     Active Substance: FLUOROURACIL
     Indication: RECTAL CANCER
     Dosage: 848 MG + 1272 MG
     Route: 042
     Dates: start: 20140225
  3. LEUCOVORIN [Suspect]
     Active Substance: LEUCOVORIN
     Indication: RECTAL CANCER
     Route: 042
     Dates: start: 20140225

REACTIONS (1)
  - Neutropenia [Recovering/Resolving]

NARRATIVE: CASE EVENT DATE: 20140311
